FAERS Safety Report 9111850 (Version 1)
Quarter: 2013Q1

REPORT INFORMATION
  Report Type: Spontaneous
  Country: US (occurrence: US)
  Receive Date: 20130219
  Receipt Date: 20130219
  Transmission Date: 20140127
  Serious: No
  Sender: FDA-Public Use
  Company Number: US-BRISTOL-MYERS SQUIBB COMPANY-16396608

PATIENT
  Age: 76 Year
  Sex: Female
  Weight: 67 kg

DRUGS (1)
  1. ORENCIA [Suspect]
     Indication: RHEUMATOID ARTHRITIS
     Dosage: IV:AUG2011, 2 INF?SUBQ:OCT2011?LAST INJECTION: 06FEB2012
     Route: 058
     Dates: start: 201110

REACTIONS (1)
  - Nasopharyngitis [Unknown]
